FAERS Safety Report 5366245-1 (Version None)
Quarter: 2007Q2

REPORT INFORMATION
  Report Type: 
  Country: None (occurrence: None)
  Receive Date: 20070620
  Receipt Date: 20070620
  Transmission Date: 20071010
  Serious: Yes (Hospitalization)
  Sender: FDA-Public Use
  Company Number: None

PATIENT
  Sex: Female
  Weight: 93.4 kg

DRUGS (12)
  1. CYCLOPHOSPHAMIDE [Suspect]
     Dosage: 4800 MG
  2. TAXOTERE [Suspect]
     Dosage: 234 MG
  3. DOXORUBICIN HYDROCHLORIDE [Suspect]
     Dosage: 480 MG
  4. ASPIRIN [Concomitant]
  5. CELEBREX [Concomitant]
  6. COREG [Concomitant]
  7. FEMARA [Concomitant]
  8. LIPITOR [Concomitant]
  9. LISINOPRIL [Concomitant]
  10. PERCOCET [Concomitant]
  11. TORSEMIDE [Concomitant]
  12. SPIRONOLACTONE [Concomitant]

REACTIONS (1)
  - CARDIAC FAILURE CONGESTIVE [None]
